FAERS Safety Report 14730309 (Version 1)
Quarter: 2018Q2

REPORT INFORMATION
  Report Type: Spontaneous
  Country: GB (occurrence: GB)
  Receive Date: 20180406
  Receipt Date: 20180406
  Transmission Date: 20180711
  Serious: Yes (Other)
  Sender: FDA-Public Use
  Company Number: GB-TEVA-2018-GB-879096

PATIENT
  Age: 80 Year
  Sex: Male
  Weight: 89 kg

DRUGS (11)
  1. SALBUTAMOL [Concomitant]
     Active Substance: ALBUTEROL
     Route: 055
     Dates: start: 20170829
  2. FLUTICASONE PROPIONATE. [Concomitant]
     Active Substance: FLUTICASONE PROPIONATE
     Dosage: 1 DOSAGE FORMS DAILY;
     Dates: start: 20170829
  3. DOXYCYCLINE. [Suspect]
     Active Substance: DOXYCYCLINE
     Dates: start: 20180123
  4. AZITHROMYCIN ANHYDROUS. [Concomitant]
     Active Substance: AZITHROMYCIN ANHYDROUS
     Dosage: 1 DOSAGE FORMS DAILY;
     Dates: start: 20180123, end: 20180126
  5. INDAPAMIDE. [Concomitant]
     Active Substance: INDAPAMIDE
     Dosage: 1 DOSAGE FORMS DAILY; EACH MORNING.
     Dates: start: 20170829
  6. FUCIDIN [Concomitant]
     Active Substance: FUSIDIC ACID
     Dosage: 2 DOSAGE FORMS DAILY; APPLY.
     Dates: start: 20180123, end: 20180130
  7. ACETYLSALICYLIC ACID [Concomitant]
     Active Substance: ASPIRIN
     Dosage: 1 DOSAGE FORMS DAILY;
     Dates: start: 20170829
  8. SYMBICORT [Concomitant]
     Active Substance: BUDESONIDE\FORMOTEROL FUMARATE DIHYDRATE
     Dosage: 4 DOSAGE FORMS DAILY; PUFFS
     Route: 055
     Dates: start: 20170829
  9. ATORVASTATIN [Concomitant]
     Active Substance: ATORVASTATIN
     Dosage: 1 DOSAGE FORMS DAILY;
     Dates: start: 20170829
  10. CLARITHROMYCIN. [Concomitant]
     Active Substance: CLARITHROMYCIN
     Dosage: STOP ATORVASTATIN WHILST ...
     Dates: start: 20180206
  11. DERMOL [Concomitant]
     Active Substance: BENZALKONIUM CHLORIDE\CHLORHEXIDINE HYDROCHLORIDE\ISOPROPYL MYRISTATE\PARAFFIN
     Dosage: USE AS DIRECTED.
     Dates: start: 20180123, end: 20180124

REACTIONS (1)
  - Genital rash [Recovered/Resolved]

NARRATIVE: CASE EVENT DATE: 20180123
